FAERS Safety Report 19975134 (Version 1)
Quarter: 2021Q4

REPORT INFORMATION
  Report Type: Spontaneous
  Country: US (occurrence: US)
  Receive Date: 20211020
  Receipt Date: 20211020
  Transmission Date: 20220303
  Serious: No
  Sender: FDA-Public Use
  Company Number: US-NESTLEHEALTHSCIENCE-2020000142

PATIENT
  Age: 79 Year
  Sex: Male
  Weight: 70 kg

DRUGS (4)
  1. ZENPEP [Suspect]
     Active Substance: PANCRELIPASE AMYLASE\PANCRELIPASE LIPASE\PANCRELIPASE PROTEASE
     Dosage: 63,000 AND 84,000 UNITS THRICE A DAY
     Route: 048
     Dates: start: 202011, end: 202012
  2. PEPCID [Concomitant]
     Active Substance: FAMOTIDINE
     Dosage: 20 ONCE A DAY
     Dates: start: 202011, end: 202012
  3. INSULIN NOS [Concomitant]
     Active Substance: INSULIN NOS
  4. DOCUSATE SODIUM [Concomitant]
     Active Substance: DOCUSATE SODIUM
     Dosage: 100 G ONCE A DAY

REACTIONS (4)
  - Dyspepsia [Unknown]
  - Blood pressure increased [Recovered/Resolved]
  - Abdominal pain upper [Recovered/Resolved]
  - Hyperglycaemia [Recovered/Resolved]

NARRATIVE: CASE EVENT DATE: 20201101
